FAERS Safety Report 10518256 (Version 1)
Quarter: 2014Q4

REPORT INFORMATION
  Report Type: Spontaneous
  Country: US (occurrence: None)
  Receive Date: 20141014
  Receipt Date: 20141014
  Transmission Date: 20150528
  Serious: Yes (Hospitalization)
  Sender: FDA-Public Use
  Company Number: None

PATIENT
  Age: 29 Year
  Sex: Male

DRUGS (1)
  1. EXJADE [Suspect]
     Active Substance: DEFERASIROX
     Indication: IRON OVERLOAD
     Dosage: 500 MG 2QD PO
     Route: 048
     Dates: start: 20140922

REACTIONS (2)
  - Blood glucose increased [None]
  - Diabetic ketoacidosis [None]

NARRATIVE: CASE EVENT DATE: 20141007
